FAERS Safety Report 5772151-0 (Version None)
Quarter: 2008Q2

REPORT INFORMATION
  Report Type: 
  Country: None (occurrence: None)
  Receive Date: 20080613
  Receipt Date: 20080602
  Transmission Date: 20081010
  Serious: Yes (Hospitalization)
  Sender: FDA-Public Use
  Company Number: CA-GILEAD-2008-0016798

PATIENT
  Age: 46 Year
  Sex: Male

DRUGS (12)
  1. VIREAD [Suspect]
     Indication: HIV INFECTION
  2. SAQUINAVIR [Concomitant]
     Indication: HIV INFECTION
  3. RITONAVIR [Concomitant]
     Indication: HIV INFECTION
  4. DIDANOSINE [Concomitant]
     Indication: HIV INFECTION
  5. LAMIVUDINE [Concomitant]
     Indication: HIV INFECTION
  6. ATOVAQUONE [Concomitant]
  7. GLYBURIDE [Concomitant]
  8. NIACIN [Concomitant]
  9. ROSUVASTATIN [Concomitant]
  10. PROBENECID [Concomitant]
  11. FLUCONAZOLE [Concomitant]
  12. AZITHROMYCIN [Concomitant]

REACTIONS (2)
  - RENAL FAILURE ACUTE [None]
  - RENAL FAILURE CHRONIC [None]
